FAERS Safety Report 9286413 (Version 3)
Quarter: 2013Q3

REPORT INFORMATION
  Report Type: Report from Study
  Country: US (occurrence: US)
  Receive Date: 20130513
  Receipt Date: 20130703
  Transmission Date: 20140515
  Serious: Yes (Disabling)
  Sender: FDA-Public Use
  Company Number: PHEH2013US008937

PATIENT
  Age: 53 Year
  Sex: Female
  Weight: 69.84 kg

DRUGS (5)
  1. GILENYA [Suspect]
     Indication: MULTIPLE SCLEROSIS
     Dosage: 0.5 MG, QD
     Route: 048
     Dates: start: 20111110
  2. CLONAZEPAM [Concomitant]
     Dosage: 0.5 MG, PRN
     Route: 048
  3. DYAZIDE [Concomitant]
     Dosage: 37.5 MG TO 25 MG
     Route: 048
  4. CYCLOBENZAPRINE [Concomitant]
     Dosage: 10 MG, PRN
     Route: 048
  5. NORTREL [Concomitant]
     Dosage: UNK UKN, UNK
     Route: 048

REACTIONS (3)
  - Arthropathy [Unknown]
  - Muscular weakness [Not Recovered/Not Resolved]
  - Multiple sclerosis relapse [Not Recovered/Not Resolved]
